FAERS Safety Report 9156957 (Version 2)
Quarter: 2013Q1

REPORT INFORMATION
  Report Type: Spontaneous
  Country: GB (occurrence: GB)
  Receive Date: 20130312
  Receipt Date: 20130325
  Transmission Date: 20140127
  Serious: Yes (Other)
  Sender: FDA-Public Use
  Company Number: PHHY2013GB023082

PATIENT
  Age: 47 Year
  Sex: Female
  Weight: 61.68 kg

DRUGS (2)
  1. VALSARTAN [Suspect]
     Indication: PALPITATIONS
     Dosage: 80 MG, UNK
     Route: 048
     Dates: start: 201211, end: 201301
  2. PARACETAMOL [Concomitant]

REACTIONS (5)
  - Tachycardia [Recovered/Resolved]
  - Breast pain [Recovered/Resolved]
  - Chest pain [Recovered/Resolved]
  - Dyspnoea [Recovered/Resolved]
  - Palpitations [Recovered/Resolved]
